FAERS Safety Report 13144832 (Version 1)
Quarter: 2017Q1

REPORT INFORMATION
  Report Type: Spontaneous
  Country: PL (occurrence: PL)
  Receive Date: 20170124
  Receipt Date: 20170124
  Transmission Date: 20170428
  Serious: Yes (Death, Other)
  Sender: FDA-Public Use
  Company Number: PL-ROCHE-1881442

PATIENT
  Age: 60 Year
  Sex: Female
  Weight: 62 kg

DRUGS (2)
  1. GAZYVARO [Suspect]
     Active Substance: OBINUTUZUMAB
     Indication: CHRONIC LYMPHOCYTIC LEUKAEMIA
     Dosage: 1, 8, 15 DAY; 1ST DAY OF SUBSEQUENT CYCLES
     Route: 042
     Dates: start: 20160309, end: 20160517
  2. CHLORAMBUCIL [Concomitant]
     Active Substance: CHLORAMBUCIL
     Indication: CHRONIC LYMPHOCYTIC LEUKAEMIA
     Dosage: 1 AND 15 DAY; EVERY 28 DAY
     Route: 048
     Dates: start: 20160309, end: 20160517

REACTIONS (5)
  - White blood cell count decreased [Unknown]
  - Fall [Unknown]
  - Glomerular filtration rate decreased [Unknown]
  - Spinal fracture [Fatal]
  - Neutropenia [Recovered/Resolved]

NARRATIVE: CASE EVENT DATE: 20160405
